FAERS Safety Report 24250356 (Version 1)
Quarter: 2024Q3

REPORT INFORMATION
  Report Type: Spontaneous
  Country: US (occurrence: None)
  Receive Date: 20240824
  Receipt Date: 20240824
  Transmission Date: 20241017
  Serious: Yes (Disabling, Congenital Anomaly, Other)
  Sender: Public
  Company Number: None

PATIENT
  Age: 37 Year
  Sex: Male
  Weight: 81 kg

DRUGS (1)
  1. FINASTERIDE [Suspect]
     Active Substance: FINASTERIDE

REACTIONS (2)
  - Testicular pain [None]
  - Depressed mood [None]

NARRATIVE: CASE EVENT DATE: 20240819
